FAERS Safety Report 7861627-8 (Version None)
Quarter: 2011Q4

REPORT INFORMATION
  Report Type: 
  Country: None (occurrence: None)
  Receive Date: 20111027
  Receipt Date: 20111019
  Transmission Date: 20120403
  Serious: Yes (Death, Other)
  Sender: FDA-Public Use
  Company Number: PHHY2011CA94434

PATIENT

DRUGS (1)
  1. MEDROXYPROGESTERONE [Suspect]
     Route: 064

REACTIONS (4)
  - MATERNAL DRUGS AFFECTING FOETUS [None]
  - DEATH [None]
  - HEART RATE IRREGULAR [None]
  - MATERNAL EXPOSURE DURING PREGNANCY [None]
